APPROVED DRUG PRODUCT: BUTALBITAL, ACETAMINOPHEN AND CAFFEINE
Active Ingredient: ACETAMINOPHEN; BUTALBITAL; CAFFEINE
Strength: 325MG;50MG;40MG
Dosage Form/Route: CAPSULE;ORAL
Application: A214087 | Product #002 | TE Code: AA
Applicant: SENORES PHARMACEUTICALS INC
Approved: Aug 13, 2021 | RLD: No | RS: No | Type: RX